FAERS Safety Report 9424028 (Version 1)
Quarter: 2013Q3

REPORT INFORMATION
  Report Type: Spontaneous
  Country: US (occurrence: US)
  Receive Date: 20130729
  Receipt Date: 20130729
  Transmission Date: 20140515
  Serious: Yes (Other)
  Sender: FDA-Public Use
  Company Number: GXBR2013US001422

PATIENT
  Sex: Female
  Weight: 60.32 kg

DRUGS (6)
  1. AMIODARONE HYDROCHLORIDE TABLETS [Suspect]
     Indication: ATRIAL FIBRILLATION
     Dosage: 200 MG, QD
     Route: 048
     Dates: start: 2006
  2. AMIODARONE HYDROCHLORIDE TABLETS [Suspect]
     Dosage: 100 MG, QD
     Route: 048
  3. ASA [Concomitant]
     Dosage: 81 MG, QD
     Route: 048
  4. MIRALAX [Concomitant]
     Dosage: UNK DF, UNK
  5. FISH OIL [Concomitant]
     Dosage: UNK DF, UNK
  6. PRAVASTATIN [Concomitant]
     Dosage: UNK DF, UNK

REACTIONS (10)
  - Bladder cancer [Recovered/Resolved]
  - Productive cough [Not Recovered/Not Resolved]
  - Vomiting [Not Recovered/Not Resolved]
  - Hepatic lesion [Not Recovered/Not Resolved]
  - Renal mass [Not Recovered/Not Resolved]
  - Gait disturbance [Not Recovered/Not Resolved]
  - Hypothyroidism [Not Recovered/Not Resolved]
  - Alopecia [Not Recovered/Not Resolved]
  - Dyskinesia [Not Recovered/Not Resolved]
  - Paraesthesia [Not Recovered/Not Resolved]
